FAERS Safety Report 18394164 (Version 2)
Quarter: 2020Q4

REPORT INFORMATION
  Report Type: Spontaneous
  Country: US (occurrence: US)
  Receive Date: 20201016
  Receipt Date: 20201117
  Transmission Date: 20210114
  Serious: No
  Sender: FDA-Public Use
  Company Number: US-009507513-2010USA003576

PATIENT
  Sex: Female
  Weight: 88.89 kg

DRUGS (1)
  1. NEXPLANON [Suspect]
     Active Substance: ETONOGESTREL
     Dosage: 1 IMPLANT IN LEFT ARM EVERY 3 YEARS
     Route: 059
     Dates: start: 20200227, end: 20201009

REACTIONS (5)
  - Menstruation irregular [Recovered/Resolved]
  - Device breakage [Recovered/Resolved]
  - Implant site scar [Unknown]
  - Menorrhagia [Unknown]
  - Device kink [Recovered/Resolved]

NARRATIVE: CASE EVENT DATE: 2020
